FAERS Safety Report 6563191-2 (Version None)
Quarter: 2010Q1

REPORT INFORMATION
  Report Type: 
  Country: None (occurrence: None)
  Receive Date: 20100130
  Receipt Date: 20091201
  Transmission Date: 20100710
  Serious: No
  Sender: FDA-Public Use
  Company Number: US-ABBOTT-09P-163-0613413-00

PATIENT
  Sex: Female

DRUGS (4)
  1. HUMIRA [Suspect]
     Indication: PSORIASIS
     Route: 058
     Dates: start: 20080801
  2. NEXIUM [Concomitant]
     Indication: GASTRIC DISORDER
  3. SOFANEX [Concomitant]
     Indication: DRUG USE FOR UNKNOWN INDICATION
     Dosage: RECENTLY STOPPED
  4. BENADRYL [Concomitant]
     Indication: HYPERSENSITIVITY
     Dosage: DAILY
     Route: 048

REACTIONS (3)
  - ALOPECIA [None]
  - DARK CIRCLES UNDER EYES [None]
  - PSORIASIS [None]
